FAERS Safety Report 8276708-7 (Version None)
Quarter: 2012Q2

REPORT INFORMATION
  Report Type: 
  Country: None (occurrence: None)
  Receive Date: 20120412
  Receipt Date: 20120412
  Transmission Date: 20120825
  Serious: Yes (Hospitalization)
  Sender: FDA-Public Use
  Company Number: None

PATIENT
  Age: 61 Year
  Sex: Male

DRUGS (1)
  1. OMNIPAQUE 240 [Suspect]
     Indication: SPINAL MYELOGRAM
     Dosage: 4800 MG
     Route: 039

REACTIONS (7)
  - MUSCLE SPASMS [None]
  - INCORRECT DOSE ADMINISTERED [None]
  - PAIN [None]
  - DELIRIUM [None]
  - NAUSEA [None]
  - GRAND MAL CONVULSION [None]
  - COMA [None]
